FAERS Safety Report 8416087-5 (Version None)
Quarter: 2012Q2

REPORT INFORMATION
  Report Type: 
  Country: None (occurrence: None)
  Receive Date: 20120606
  Receipt Date: 20120601
  Transmission Date: 20120825
  Serious: Yes (Hospitalization)
  Sender: FDA-Public Use
  Company Number: US-BAYER-2012-055452

PATIENT
  Age: 20 Year
  Sex: Female
  Weight: 54.422 kg

DRUGS (5)
  1. LEXAPRO [Concomitant]
     Dosage: UNK
     Dates: start: 20110721
  2. LEXAPRO [Concomitant]
     Indication: ANXIETY
     Dosage: 10 MG, DAILY
     Dates: start: 20110505, end: 20110614
  3. YAZ [Suspect]
     Indication: DYSMENORRHOEA
  4. MUPIROCIN [Concomitant]
     Dosage: 2 %, TWICE DAILY
     Dates: start: 20110511
  5. DROSPIRENONE AND ETHINYL ESTRADIOL [Suspect]

REACTIONS (1)
  - PULMONARY EMBOLISM [None]
